FAERS Safety Report 18755919 (Version 1)
Quarter: 2021Q1

REPORT INFORMATION
  Report Type: Spontaneous
  Country: US (occurrence: US)
  Receive Date: 20210115
  Receipt Date: 20210115
  Transmission Date: 20210419
  Serious: Yes (Disabling)
  Sender: FDA-Public Use
  Company Number: None

PATIENT
  Age: 27 Year
  Sex: Male
  Weight: 60.75 kg

DRUGS (6)
  1. MELATONIN 10MG [Concomitant]
  2. BOTOX [Suspect]
     Active Substance: ONABOTULINUMTOXINA
     Indication: MIGRAINE
     Route: 058
     Dates: start: 20200715
  3. LITHIUM. [Concomitant]
     Active Substance: LITHIUM
  4. MAGNESIUM SUPPLEMENT [Concomitant]
     Active Substance: MAGNESIUM
  5. EMGALITY [Concomitant]
     Active Substance: GALCANEZUMAB-GNLM
  6. UBRELVY 100MG [Concomitant]

REACTIONS (13)
  - Bedridden [None]
  - Syncope [None]
  - Dysphagia [None]
  - Vision blurred [None]
  - Vertigo [None]
  - Muscular weakness [None]
  - Ocular discomfort [None]
  - Dizziness [None]
  - Arthralgia [None]
  - Eyelid ptosis [None]
  - Neck pain [None]
  - Pruritus [None]
  - Contusion [None]

NARRATIVE: CASE EVENT DATE: 20200715
